FAERS Safety Report 9970145 (Version 3)
Quarter: 2014Q2

REPORT INFORMATION
  Report Type: Report from Study
  Country: CH (occurrence: CH)
  Receive Date: 20140306
  Receipt Date: 20140528
  Transmission Date: 20141212
  Serious: Yes (Hospitalization)
  Sender: FDA-Public Use
  Company Number: PHHO2014CH002938

PATIENT
  Sex: 0

DRUGS (2)
  1. ACZ885 [Suspect]
     Indication: CRYOPYRIN ASSOCIATED PERIODIC SYNDROME
     Dosage: 4 MG/KG, UNK
     Dates: start: 20130501
  2. ACZ885 [Suspect]
     Dosage: 8 MG/KG, UNK

REACTIONS (1)
  - Femur fracture [Recovered/Resolved]
